FAERS Safety Report 6055191-6 (Version None)
Quarter: 2009Q1

REPORT INFORMATION
  Report Type: 
  Country: None (occurrence: None)
  Receive Date: 20090122
  Receipt Date: 20090108
  Transmission Date: 20090719
  Serious: Yes (Death)
  Sender: FDA-Public Use
  Company Number: 090113-0000042

PATIENT
  Age: 2 Month

DRUGS (4)
  1. NEOPROFEN [Suspect]
     Indication: DRUG USE FOR UNKNOWN INDICATION
  2. DIPHENHYDRAMINE HCL [Suspect]
     Indication: DRUG USE FOR UNKNOWN INDICATION
  3. PSEUDOEPHEDRINE HCL [Suspect]
     Indication: DRUG USE FOR UNKNOWN INDICATION
  4. DOXYLAMINE [Suspect]
     Indication: DRUG USE FOR UNKNOWN INDICATION

REACTIONS (5)
  - CARDIAC ARREST [None]
  - CORNEAL OEDEMA [None]
  - DRUG SCREEN POSITIVE [None]
  - PUPIL FIXED [None]
  - VICTIM OF HOMICIDE [None]
